FAERS Safety Report 17075675 (Version 1)
Quarter: 2019Q4

REPORT INFORMATION
  Report Type: Spontaneous
  Country: US (occurrence: US)
  Receive Date: 20191125
  Receipt Date: 20191125
  Transmission Date: 20200122
  Serious: Yes (Hospitalization)
  Sender: FDA-Public Use
  Company Number: None

PATIENT
  Age: 67 Year
  Sex: Male
  Weight: 75.6 kg

DRUGS (4)
  1. RISPERIDONE 1MG [Concomitant]
     Active Substance: RISPERIDONE
     Dates: start: 20190815, end: 20190930
  2. LITHIUM CR [Suspect]
     Active Substance: LITHIUM CARBONATE
     Indication: BIPOLAR DISORDER
     Route: 048
     Dates: start: 20190909, end: 20190916
  3. LITHIUM CR [Suspect]
     Active Substance: LITHIUM CARBONATE
     Indication: BIPOLAR DISORDER
     Route: 048
     Dates: start: 20190829, end: 20190909
  4. AMOXICILLIN 500MG [Concomitant]
     Active Substance: AMOXICILLIN
     Dates: start: 20190910, end: 20190916

REACTIONS (8)
  - Dizziness [None]
  - Toxicity to various agents [None]
  - Blood pressure increased [None]
  - Cellulitis [None]
  - Blood creatinine increased [None]
  - Abdominal discomfort [None]
  - Blood urea increased [None]
  - Headache [None]

NARRATIVE: CASE EVENT DATE: 20190916
